FAERS Safety Report 20084867 (Version 1)
Quarter: 2021Q4

REPORT INFORMATION
  Report Type: Report from Study
  Country: CA (occurrence: CA)
  Receive Date: 20211118
  Receipt Date: 20211118
  Transmission Date: 20220304
  Serious: Yes (Other)
  Sender: FDA-Public Use
  Company Number: CA-NOVARTISPH-NVSC2021CA258713

PATIENT
  Sex: Female

DRUGS (4)
  1. LORAZEPAM [Suspect]
     Active Substance: LORAZEPAM
     Indication: Anxiety
     Dosage: UNK
     Route: 065
  2. SYMBICORT [Concomitant]
     Active Substance: BUDESONIDE\FORMOTEROL FUMARATE DIHYDRATE
     Indication: Product used for unknown indication
     Dosage: UNK
     Route: 065
  3. BENADRYL [Concomitant]
     Active Substance: DIPHENHYDRAMINE HYDROCHLORIDE
     Indication: Product used for unknown indication
     Dosage: UNK
     Route: 065
  4. SINGULAIR [Concomitant]
     Active Substance: MONTELUKAST SODIUM
     Indication: Product used for unknown indication
     Dosage: UNK
     Route: 065

REACTIONS (17)
  - Nephrolithiasis [Unknown]
  - Conjunctivitis allergic [Unknown]
  - Asthma [Unknown]
  - Vocal cord dysfunction [Unknown]
  - Urticaria [Unknown]
  - Urticaria aquagenic [Unknown]
  - Mechanical urticaria [Unknown]
  - Chronic spontaneous urticaria [Unknown]
  - Back pain [Unknown]
  - Stress [Unknown]
  - Urinary tract infection [Unknown]
  - Cystic lung disease [Unknown]
  - Rhinitis [Unknown]
  - Conjunctivitis [Unknown]
  - Obstruction [Unknown]
  - Ocular hyperaemia [Unknown]
  - Eye pruritus [Unknown]
